FAERS Safety Report 4549054-2 (Version None)
Quarter: 2005Q1

REPORT INFORMATION
  Report Type: 
  Country: None (occurrence: None)
  Receive Date: 20050110
  Receipt Date: 20050104
  Transmission Date: 20050727
  Serious: Yes (Hospitalization)
  Sender: FDA-Public Use
  Company Number: FR-MERCK-0501FRA00015

PATIENT
  Age: 30 Year
  Sex: Female
  Weight: 84 kg

DRUGS (3)
  1. COSMEGEN [Suspect]
     Route: 042
     Dates: start: 20040806, end: 20041105
  2. ETOPOSIDE [Suspect]
     Route: 042
     Dates: start: 20040806, end: 20041105
  3. ONDANSETRON HYDROCHLORIDE [Suspect]
     Route: 042
     Dates: start: 20040806, end: 20041105

REACTIONS (1)
  - INTERSTITIAL LUNG DISEASE [None]
